FAERS Safety Report 8996442 (Version 7)
Quarter: 2014Q2

REPORT INFORMATION
  Report Type: Report from Study
  Country: BR (occurrence: BR)
  Receive Date: 20130104
  Receipt Date: 20140616
  Transmission Date: 20141212
  Serious: Yes (Other)
  Sender: FDA-Public Use
  Company Number: BR-BIOGENIDEC-2012BI029033

PATIENT
  Age: 34 Year
  Sex: Female
  Weight: 63 kg

DRUGS (5)
  1. AVONEX [Suspect]
     Indication: MULTIPLE SCLEROSIS
     Route: 030
     Dates: start: 20090801, end: 20120316
  2. FOLIC ACID [Concomitant]
     Indication: PREGNANCY
     Route: 048
     Dates: start: 201204, end: 201206
  3. VITAMIN COMPLEX [Concomitant]
     Indication: PREGNANCY
     Route: 048
     Dates: start: 201207, end: 20120929
  4. CELESTONE [Concomitant]
     Indication: THREATENED LABOUR
     Route: 048
     Dates: start: 20121003
  5. SOLU MEDROL [Concomitant]
     Indication: THREATENED LABOUR
     Route: 048
     Dates: start: 20121003

REACTIONS (4)
  - Caesarean section [Recovered/Resolved]
  - Uterine contractions during pregnancy [Unknown]
  - Abdominal distension [Unknown]
  - Anaemia [Unknown]
